FAERS Safety Report 8535159-8 (Version None)
Quarter: 2012Q3

REPORT INFORMATION
  Report Type: 
  Country: None (occurrence: None)
  Receive Date: 20120724
  Receipt Date: 20120710
  Transmission Date: 20120928
  Serious: Yes (Hospitalization, Other)
  Sender: FDA-Public Use
  Company Number: US-009507513-1207USA007939

PATIENT

DRUGS (3)
  1. FOSAMAX [Suspect]
     Indication: OSTEOPOROSIS
     Dosage: 70 MG, QW
     Route: 048
     Dates: start: 20080425, end: 20090724
  2. FOSAMAX [Suspect]
     Dosage: UNK
     Route: 048
     Dates: start: 20080424, end: 20090724
  3. FOSAMAX [Suspect]
     Dosage: 70 MG, UNK
     Dates: start: 20080608, end: 20090724

REACTIONS (3)
  - NEUROPATHY PERIPHERAL [None]
  - HIP FRACTURE [None]
  - CARPAL TUNNEL SYNDROME [None]
